FAERS Safety Report 16164695 (Version 2)
Quarter: 2019Q4

REPORT INFORMATION
  Report Type: Spontaneous
  Country: TW (occurrence: TW)
  Receive Date: 20190405
  Receipt Date: 20191014
  Transmission Date: 20200122
  Serious: Yes (Death, Other)
  Sender: FDA-Public Use
  Company Number: TW-GLAXOSMITHKLINE-TW2019GSK060280

PATIENT
  Age: 75 Year
  Sex: Male

DRUGS (2)
  1. ZANTAC [Suspect]
     Active Substance: RANITIDINE HYDROCHLORIDE
     Indication: GASTROINTESTINAL DISORDER PROPHYLAXIS
     Dosage: 50MG/2ML/AMP
     Route: 042
  2. CEFOXITIN [Concomitant]
     Active Substance: CEFOXITIN SODIUM
     Indication: CHOLANGITIS ACUTE
     Dosage: UNK

REACTIONS (9)
  - Depressed level of consciousness [Unknown]
  - Cold sweat [Unknown]
  - Irritability [Unknown]
  - Injection site pain [Unknown]
  - Cardiopulmonary failure [Fatal]
  - Erythema [Unknown]
  - Anaphylactic reaction [Fatal]
  - Pruritus [Unknown]
  - Dyspnoea [Unknown]
